FAERS Safety Report 6377314-1 (Version None)
Quarter: 2009Q3

REPORT INFORMATION
  Report Type: 
  Country: None (occurrence: None)
  Receive Date: 20090925
  Receipt Date: 20090915
  Transmission Date: 20100115
  Serious: Yes (Hospitalization, Other)
  Sender: FDA-Public Use
  Company Number: US-WATSON-2009-05412

PATIENT
  Sex: Female
  Weight: 47.619 kg

DRUGS (8)
  1. FERRLECIT [Suspect]
     Indication: IRON DEFICIENCY ANAEMIA
     Dosage: 250 MG, OVER 2 HOURS WITH 1 LITER NORMAL SALINE
     Route: 042
     Dates: start: 20090706, end: 20090706
  2. FERRLECIT [Suspect]
     Dosage: 125 MG/WEEK (FOR TOTAL OF 4 WEEKS)
     Route: 042
     Dates: start: 20090501, end: 20090601
  3. FERRLECIT [Suspect]
     Dosage: 250 MG, OVER 2 HOURS DILUTED WITH NORMAL SALINE (AMOUNT UNKNOWN)
     Route: 042
     Dates: start: 20090511, end: 20090511
  4. VENOFER [Suspect]
     Indication: DRUG USE FOR UNKNOWN INDICATION
     Dosage: RECEIVED VENOFER (UNKNOWN AMOUNT) FOR FIVE CONSECUTIVE DAYS THE LAST WEEK OF AUGUST 2009
     Route: 065
     Dates: start: 20090801
  5. DEXAMETHASONE 4MG TAB [Suspect]
     Indication: PREMEDICATION
     Dosage: 2 MG IV PIGGYBACK WITH 100 CC NORMAL SALINE
     Route: 042
     Dates: start: 20090801, end: 20090801
  6. SOLU-CORTEF [Suspect]
     Indication: PREMEDICATION
     Dosage: 100 MG IV PIGGYBACK
     Route: 042
     Dates: start: 20090501, end: 20090701
  7. CITALOPRAM HYDROBROMIDE [Suspect]
     Indication: ANTIDEPRESSANT THERAPY
     Dosage: UNK
     Dates: start: 20090910, end: 20090915
  8. PRILOSEC [Concomitant]
     Indication: GASTROOESOPHAGEAL REFLUX DISEASE
     Dosage: UNK
     Route: 048

REACTIONS (39)
  - ABDOMINAL PAIN [None]
  - AGITATION [None]
  - ANAEMIA [None]
  - BACK PAIN [None]
  - BLOOD PRESSURE DECREASED [None]
  - BLOOD PRESSURE SYSTOLIC DECREASED [None]
  - CONFUSIONAL STATE [None]
  - DECREASED APPETITE [None]
  - DIARRHOEA [None]
  - DISORIENTATION [None]
  - DIZZINESS [None]
  - DRY MOUTH [None]
  - DYSGEUSIA [None]
  - DYSKINESIA [None]
  - DYSPNOEA [None]
  - FAECAL INCONTINENCE [None]
  - FATIGUE [None]
  - FEELING ABNORMAL [None]
  - HAEMATOCRIT DECREASED [None]
  - HAEMOGLOBIN DECREASED [None]
  - HYPOAESTHESIA [None]
  - HYPOKALAEMIA [None]
  - HYPOTENSION [None]
  - HYPOTONIA [None]
  - INJECTION SITE SWELLING [None]
  - INSOMNIA [None]
  - LOGORRHOEA [None]
  - LOSS OF CONSCIOUSNESS [None]
  - NAUSEA [None]
  - NERVOUSNESS [None]
  - OVERDOSE [None]
  - PSYCHOMOTOR HYPERACTIVITY [None]
  - RECTAL HAEMORRHAGE [None]
  - STEROID WITHDRAWAL SYNDROME [None]
  - SYNCOPE [None]
  - TREMOR [None]
  - VISION BLURRED [None]
  - VOMITING [None]
  - WEIGHT DECREASED [None]
